FAERS Safety Report 20203389 (Version 2)
Quarter: 2021Q4

REPORT INFORMATION
  Report Type: Spontaneous
  Country: US (occurrence: US)
  Receive Date: 20211218
  Receipt Date: 20211230
  Transmission Date: 20220304
  Serious: Yes (Disabling, Other)
  Sender: FDA-Public Use
  Company Number: US-REGENERON PHARMACEUTICALS, INC.-2021-116692

PATIENT

DRUGS (11)
  1. EYLEA [Suspect]
     Active Substance: AFLIBERCEPT
     Indication: Neovascular age-related macular degeneration
     Dosage: 2 MG/0.5 ML, 11 WEEK CHANGED TO 4-6 WEEKS INTO BOTH EYES
     Route: 031
     Dates: start: 20160127
  2. HYDROCHLOROTHIAZIDE\LISINOPRIL [Concomitant]
     Active Substance: HYDROCHLOROTHIAZIDE\LISINOPRIL
     Indication: Product used for unknown indication
     Dosage: UNK
     Route: 048
  3. CALCIUM [Concomitant]
     Active Substance: CALCIUM
     Indication: Product used for unknown indication
     Dosage: UNK
  4. BENADRYL ALLERGY                   /00000402/ [Concomitant]
     Indication: Product used for unknown indication
     Dosage: UNK, PRN
  5. CANNABIDIOL [Concomitant]
     Active Substance: CANNABIDIOL
     Indication: Product used for unknown indication
     Dosage: UNK, CBD OIL
  6. CEPHALEXIN                         /00145501/ [Concomitant]
     Indication: Product used for unknown indication
     Dosage: 250MG/5ML ORAL SUSPENSION
     Route: 048
  7. ELIQUIS [Concomitant]
     Active Substance: APIXABAN
     Indication: Product used for unknown indication
     Dosage: 5 MG, QD
     Route: 048
  8. LEVOTHYROXINE SODIUM [Concomitant]
     Active Substance: LEVOTHYROXINE SODIUM
     Indication: Product used for unknown indication
     Dosage: UNK
     Route: 048
  9. VITAMIN D                          /00107901/ [Concomitant]
     Indication: Product used for unknown indication
     Dosage: UNK
     Route: 048
  10. MINERALS\VITAMINS [Concomitant]
     Active Substance: MINERALS\VITAMINS
     Indication: Product used for unknown indication
     Dosage: 1 TABLET, BID, BY MOUTH
     Route: 048
  11. TIMOLOL MALEATE [Concomitant]
     Active Substance: TIMOLOL MALEATE
     Indication: Glaucoma
     Dosage: 1 GTT, BID OU
     Route: 047

REACTIONS (4)
  - Blindness [Not Recovered/Not Resolved]
  - Diplopia [Not Recovered/Not Resolved]
  - Metamorphopsia [Not Recovered/Not Resolved]
  - Vision blurred [Not Recovered/Not Resolved]

NARRATIVE: CASE EVENT DATE: 20211209
